FAERS Safety Report 4957714-4 (Version None)
Quarter: 2006Q1

REPORT INFORMATION
  Report Type: 
  Country: None (occurrence: None)
  Receive Date: 20060330
  Receipt Date: 20060321
  Transmission Date: 20060701
  Serious: Yes (Life-Threatening, Other)
  Sender: FDA-Public Use
  Company Number: NL-JNJFOC-20060300755

PATIENT
  Sex: Female
  Weight: 3.5 kg

DRUGS (1)
  1. DAKTARIN [Suspect]
     Route: 048

REACTIONS (2)
  - INJURY ASPHYXIATION [None]
  - INTENTIONAL DRUG MISUSE [None]
